FAERS Safety Report 5731443-1 (Version None)
Quarter: 2008Q2

REPORT INFORMATION
  Report Type: 
  Country: None (occurrence: None)
  Receive Date: 20080508
  Receipt Date: 20080506
  Transmission Date: 20081010
  Serious: Yes (Other)
  Sender: FDA-Public Use
  Company Number: PHEH2007US02298

PATIENT
  Age: 62 Year
  Sex: Male
  Weight: 108 kg

DRUGS (2)
  1. FORADIL [Suspect]
     Indication: ASTHMA
     Dosage: 12X PER DAY
     Dates: start: 20060101, end: 20080309
  2. ALBUTEROL [Concomitant]
     Indication: ASTHMA

REACTIONS (8)
  - DEVICE MALFUNCTION [None]
  - DYSPNOEA [None]
  - LUNG DISORDER [None]
  - PHARYNGOLARYNGEAL PAIN [None]
  - PRODUCTIVE COUGH [None]
  - TOOTH INFECTION [None]
  - TOOTH LOSS [None]
  - TOOTH REPAIR [None]
